FAERS Safety Report 8513502-3 (Version None)
Quarter: 2012Q3

REPORT INFORMATION
  Report Type: 
  Country: None (occurrence: None)
  Receive Date: 20120717
  Receipt Date: 20120710
  Transmission Date: 20120928
  Serious: No
  Sender: FDA-Public Use
  Company Number: US-BIOGENIDEC-2012BI024676

PATIENT
  Sex: Female

DRUGS (3)
  1. TYSABRI [Suspect]
     Indication: MULTIPLE SCLEROSIS
     Route: 042
     Dates: start: 20080201, end: 20091218
  2. TYSABRI [Suspect]
     Route: 042
     Dates: start: 20101027, end: 20110708
  3. TYSABRI [Suspect]
     Route: 042
     Dates: start: 20111129

REACTIONS (1)
  - MALAISE [None]
